FAERS Safety Report 11840980 (Version 1)
Quarter: 2015Q4

REPORT INFORMATION
  Report Type: Spontaneous
  Country: FR (occurrence: FR)
  Receive Date: 20151216
  Receipt Date: 20151216
  Transmission Date: 20160305
  Serious: Yes (Death, Hospitalization, Other)
  Sender: FDA-Public Use
  Company Number: FR-BRISTOL-MYERS SQUIBB COMPANY-BMS-2015-084467

PATIENT
  Age: 83 Year
  Sex: Male

DRUGS (2)
  1. AUGMENTIN [Suspect]
     Active Substance: AMOXICILLIN\CLAVULANATE POTASSIUM
     Indication: PNEUMONIA ASPIRATION
     Dosage: 1 DF, TID
     Route: 048
     Dates: start: 20150824, end: 20150904
  2. COUMADINE [Suspect]
     Active Substance: WARFARIN SODIUM
     Indication: PRODUCT USED FOR UNKNOWN INDICATION
     Dosage: UNK
     Route: 048
     Dates: start: 20150817, end: 20150831

REACTIONS (3)
  - Purpura [Recovered/Resolved]
  - Pneumonia aspiration [Fatal]
  - Overdose [Unknown]

NARRATIVE: CASE EVENT DATE: 20150901
